FAERS Safety Report 9050472 (Version 1)
Quarter: 2013Q1

REPORT INFORMATION
  Report Type: Spontaneous
  Country: US (occurrence: US)
  Receive Date: 20130205
  Receipt Date: 20130205
  Transmission Date: 20140127
  Serious: No
  Sender: FDA-Public Use
  Company Number: US-PFIZER INC-2013044356

PATIENT
  Sex: Female
  Weight: 72.56 kg

DRUGS (4)
  1. GABAPENTIN [Suspect]
     Indication: HERPES ZOSTER
     Dosage: 100 MG, DAILY
     Dates: start: 20130103, end: 201301
  2. MAGNESIUM [Suspect]
     Indication: OSTEOPOROSIS
     Dosage: 225 MG, DAILY
     Dates: end: 20130101
  3. MAGNESIUM [Suspect]
     Dosage: 225 MG, DAILY
     Dates: start: 20130103
  4. ACYCLOVIR [Suspect]
     Indication: HERPES ZOSTER
     Dosage: 800 MG, FOUR TO FIVE TIMES A DAY
     Dates: start: 20130103, end: 201301

REACTIONS (2)
  - Abdominal pain upper [Recovered/Resolved]
  - Off label use [Recovered/Resolved]
